FAERS Safety Report 24100693 (Version 2)
Quarter: 2025Q3

REPORT INFORMATION
  Report Type: Spontaneous
  Country: US (occurrence: US)
  Receive Date: 20240717
  Receipt Date: 20250715
  Transmission Date: 20251021
  Serious: No
  Sender: NOVO NORDISK
  Company Number: US-NOVOPROD-1223273

PATIENT
  Sex: Female

DRUGS (1)
  1. OZEMPIC [Suspect]
     Active Substance: SEMAGLUTIDE
     Indication: Weight control
     Route: 058
     Dates: end: 202307

REACTIONS (8)
  - Blood cholesterol increased [Unknown]
  - Blood pressure increased [Unknown]
  - Arthralgia [Unknown]
  - Body mass index increased [Unknown]
  - Insulin resistance [Unknown]
  - Blood glucose increased [Unknown]
  - Glycosylated haemoglobin increased [Unknown]
  - Product use in unapproved indication [Unknown]
